FAERS Safety Report 12648855 (Version 1)
Quarter: 2016Q3

REPORT INFORMATION
  Report Type: Spontaneous
  Country: US (occurrence: US)
  Receive Date: 20160812
  Receipt Date: 20160812
  Transmission Date: 20161109
  Serious: No
  Sender: FDA-Public Use
  Company Number: US-PFIZER INC-2016383346

PATIENT
  Age: 46 Year
  Sex: Female
  Weight: 86.17 kg

DRUGS (3)
  1. NEXIUM [Concomitant]
     Active Substance: ESOMEPRAZOLE MAGNESIUM
     Indication: GASTROOESOPHAGEAL REFLUX DISEASE
     Dosage: 40MG ONE CAPSULE BY MOUTH DAILY
     Route: 048
  2. VALIUM [Concomitant]
     Active Substance: DIAZEPAM
     Indication: ANXIETY
     Dosage: 10 MG, AS NEEDED TWICE A DAY AS NEEDED
     Route: 048
     Dates: end: 2007
  3. CHANTIX [Suspect]
     Active Substance: VARENICLINE TARTRATE
     Indication: SMOKING CESSATION THERAPY
     Dosage: UNK
     Dates: start: 2008

REACTIONS (4)
  - Nausea [Unknown]
  - Pre-existing condition improved [Unknown]
  - Abnormal dreams [Recovered/Resolved]
  - Therapeutic response unexpected [Unknown]
